FAERS Safety Report 7705360-1 (Version None)
Quarter: 2011Q3

REPORT INFORMATION
  Report Type: 
  Country: None (occurrence: None)
  Receive Date: 20110818
  Receipt Date: 20110804
  Transmission Date: 20111222
  Serious: Yes (Other)
  Sender: FDA-Public Use
  Company Number: AUR-APU-2011-04587

PATIENT
  Sex: Male

DRUGS (3)
  1. ALENDRONIC ACID (ALENDRONIC ACID) [Suspect]
     Indication: BONE LESION
     Dosage: 70 MG, 1 IN 1 WK
  2. PROVENTIL [Concomitant]
  3. ADVAIR DISKUS 100/50 [Concomitant]

REACTIONS (2)
  - ARTHRALGIA [None]
  - PAIN IN EXTREMITY [None]
